FAERS Safety Report 20193510 (Version 3)
Quarter: 2023Q4

REPORT INFORMATION
  Report Type: Report from Study
  Country: FR (occurrence: None)
  Receive Date: 20211216
  Receipt Date: 20231019
  Transmission Date: 20240110
  Serious: Yes (Hospitalization)
  Sender: FDA-Public Use
  Company Number: FR-ROCHE-2973758

PATIENT
  Sex: Male

DRUGS (5)
  1. ATEZOLIZUMAB [Suspect]
     Active Substance: ATEZOLIZUMAB
     Indication: Neoplasm
     Dosage: ON 28/SEP/2023, 09/NOV/2021, RECEIVED LAST DOSE WAS ADMINISTERED PRIOR TO AE.
     Route: 041
     Dates: start: 20210920
  2. ACETAMINOPHEN [Concomitant]
     Active Substance: ACETAMINOPHEN
     Dates: start: 20211015
  3. TRAMADOL [Concomitant]
     Active Substance: TRAMADOL\TRAMADOL HYDROCHLORIDE
     Dates: start: 20211019
  4. IRBESARTAN [Concomitant]
     Active Substance: IRBESARTAN
     Indication: Hypertension
     Dates: start: 20100101
  5. OMEPRAZOLE [Concomitant]
     Active Substance: OMEPRAZOLE
     Dates: start: 20100101

REACTIONS (2)
  - Cell death [Recovered/Resolved with Sequelae]
  - Hyperbilirubinaemia [Recovered/Resolved with Sequelae]

NARRATIVE: CASE EVENT DATE: 20211130
